FAERS Safety Report 6033944-8 (Version None)
Quarter: 2009Q1

REPORT INFORMATION
  Report Type: 
  Country: None (occurrence: None)
  Receive Date: 20090112
  Receipt Date: 20090106
  Transmission Date: 20090719
  Serious: Yes (Life-Threatening, Hospitalization, Other)
  Sender: FDA-Public Use
  Company Number: PHBS2009IT00443

PATIENT
  Age: 60 Year
  Sex: Male

DRUGS (3)
  1. CYCLOSPORINE [Suspect]
     Indication: HEART TRANSPLANT
  2. CYCLOSPORINE [Interacting]
     Indication: IMMUNOSUPPRESSION
  3. COLCHICINE [Interacting]
     Indication: GOUT

REACTIONS (10)
  - CARDIOTOXICITY [None]
  - DRUG TOXICITY [None]
  - GOUT [None]
  - INFECTION [None]
  - LIVER INJURY [None]
  - MULTI-ORGAN FAILURE [None]
  - NEUTROPENIA [None]
  - POLYNEUROPATHY [None]
  - RENAL FAILURE CHRONIC [None]
  - RHABDOMYOLYSIS [None]
